FAERS Safety Report 6277514-5 (Version None)
Quarter: 2009Q3

REPORT INFORMATION
  Report Type: 
  Country: None (occurrence: None)
  Receive Date: 20090722
  Receipt Date: 20090713
  Transmission Date: 20100115
  Serious: Yes (Hospitalization)
  Sender: FDA-Public Use
  Company Number: JP-ABBOTT-09P-087-0585029-00

PATIENT
  Sex: Female

DRUGS (9)
  1. KALETRA [Suspect]
     Indication: HIV INFECTION
     Dosage: 800/200MG- 4 DOSAGE FORMS DAILY
     Route: 048
     Dates: start: 20061116
  2. ABACAVIR [Concomitant]
     Indication: HIV INFECTION
     Dosage: 600MG DAILY
     Route: 048
     Dates: start: 20010130
  3. EFAVIRENZ [Concomitant]
     Indication: HIV INFECTION
     Dosage: 600MG DAILY
     Route: 048
     Dates: start: 20010130
  4. HYDROCORTISONE [Concomitant]
     Indication: ADRENAL INSUFFICIENCY
     Route: 048
     Dates: start: 20030917
  5. BEZAFIBRATE [Concomitant]
     Indication: HYPERLIPIDAEMIA
     Route: 048
     Dates: start: 20030820
  6. MORPHINE HYDROCHLORIDE [Concomitant]
     Indication: HYPOAESTHESIA
     Route: 054
     Dates: start: 20000315
  7. MORPHINE HYDROCHLORIDE [Concomitant]
     Indication: PAIN IN EXTREMITY
  8. TRANEXAMIC ACID [Concomitant]
     Indication: DRUG USE FOR UNKNOWN INDICATION
     Route: 048
     Dates: start: 20081013
  9. VITAMIN B COMPLEX CAP [Concomitant]
     Indication: DRUG USE FOR UNKNOWN INDICATION
     Route: 048
     Dates: start: 20081023

REACTIONS (4)
  - ABDOMINAL PAIN LOWER [None]
  - HAEMATOMA [None]
  - HAEMATURIA [None]
  - URINARY RETENTION [None]
